FAERS Safety Report 5145704-0 (Version None)
Quarter: 2006Q4

REPORT INFORMATION
  Report Type: 
  Country: None (occurrence: None)
  Receive Date: 20061102
  Receipt Date: 20061019
  Transmission Date: 20070319
  Serious: Yes (Hospitalization)
  Sender: FDA-Public Use
  Company Number: 2006SP004704

PATIENT
  Age: 61 Year
  Sex: Male
  Weight: 94.3 kg

DRUGS (2)
  1. TEMOZOLOMIDE [Suspect]
     Indication: METASTATIC MALIGNANT MELANOMA
     Dosage: 315 MG
     Dates: start: 20060810
  2. KEVATRIL [Concomitant]

REACTIONS (1)
  - PLEURAL EFFUSION [None]
